FAERS Safety Report 10181274 (Version 3)
Quarter: 2014Q3

REPORT INFORMATION
  Report Type: Spontaneous
  Country: US (occurrence: US)
  Receive Date: 20140519
  Receipt Date: 20140827
  Transmission Date: 20150326
  Serious: Yes (Hospitalization, Other)
  Sender: FDA-Public Use
  Company Number: US-AMGEN INC.-USASP2014033036

PATIENT
  Age: 81 Year
  Sex: Female

DRUGS (5)
  1. VITAMINS                           /00067501/ [Concomitant]
  2. PERSANTINE [Concomitant]
     Active Substance: DIPYRIDAMOLE
  3. ASPIRIN. [Concomitant]
     Active Substance: ASPIRIN
  4. VITAMIN D                          /00107901/ [Concomitant]
     Active Substance: ERGOCALCIFEROL
  5. PROLIA [Suspect]
     Active Substance: DENOSUMAB
     Indication: PRODUCT USED FOR UNKNOWN INDICATION
     Route: 065

REACTIONS (10)
  - Loss of consciousness [Unknown]
  - Skin ulcer [Unknown]
  - Rash macular [Unknown]
  - Dyspepsia [Unknown]
  - Stomatitis [Not Recovered/Not Resolved]
  - Dyspnoea [Recovered/Resolved]
  - Hypoaesthesia [Unknown]
  - Oral viral infection [Not Recovered/Not Resolved]
  - Oral mucosal blistering [Recovered/Resolved]
  - Urticaria [Unknown]

NARRATIVE: CASE EVENT DATE: 201403
